FAERS Safety Report 6391559-6 (Version None)
Quarter: 2009Q4

REPORT INFORMATION
  Report Type: 
  Country: None (occurrence: None)
  Receive Date: 20091001
  Receipt Date: 20090922
  Transmission Date: 20100525
  Serious: Yes (Other)
  Sender: FDA-Public Use
  Company Number: ADR28102009

PATIENT
  Age: 70 Year
  Sex: Male

DRUGS (12)
  1. RAMIPRIL [Suspect]
     Dosage: 10 MG, ORAL
     Route: 048
     Dates: start: 20071012, end: 20081002
  2. LISINOPRIL [Concomitant]
  3. ADALTT LA (60 MG) [Concomitant]
  4. ASPIRIN [Concomitant]
  5. BENDROFLUMETHIAZIDE (2.5 MG) [Concomitant]
  6. CHONDOITIN (UNKNOWN) [Concomitant]
  7. GLUCOSAMINE (UNKNOWN) [Concomitant]
  8. PARACETAMOL (100 MG) [Concomitant]
  9. PERINDOPRIL (8 MG) [Concomitant]
  10. QVAR 80 [Concomitant]
  11. SILDENAFIL (50 MG) [Concomitant]
  12. SIMVASTATIN [Concomitant]

REACTIONS (5)
  - CHEST PAIN [None]
  - CONFUSIONAL STATE [None]
  - DRY MOUTH [None]
  - FATIGUE [None]
  - MOOD SWINGS [None]
